FAERS Safety Report 14219894 (Version 1)
Quarter: 2017Q4

REPORT INFORMATION
  Report Type: Spontaneous
  Country: US (occurrence: US)
  Receive Date: 20171123
  Receipt Date: 20171123
  Transmission Date: 20180321
  Serious: No
  Sender: FDA-Public Use
  Company Number: US-JNJFOC-20170915546

PATIENT
  Sex: Female

DRUGS (3)
  1. SOLU-MEDROL [Concomitant]
     Active Substance: METHYLPREDNISOLONE SODIUM SUCCINATE
  2. DARZALEX [Suspect]
     Active Substance: DARATUMUMAB
     Indication: PRODUCT USED FOR UNKNOWN INDICATION
     Dosage: RESTARTED AT HALF THE FLOW RATE
     Route: 042
  3. DARZALEX [Suspect]
     Active Substance: DARATUMUMAB
     Indication: PRODUCT USED FOR UNKNOWN INDICATION
     Dosage: RESTARTED AT HALF THE FLOW RATE
     Route: 042

REACTIONS (3)
  - Rhinorrhoea [Recovered/Resolved]
  - Monoclonal immunoglobulin present [Recovered/Resolved]
  - Infusion related reaction [Recovered/Resolved]
